FAERS Safety Report 4578972-4 (Version None)
Quarter: 2005Q1

REPORT INFORMATION
  Report Type: 
  Country: None (occurrence: None)
  Receive Date: 20050211
  Receipt Date: 20041012
  Transmission Date: 20050727
  Serious: Yes (Life-Threatening, Hospitalization, Disabling, Other)
  Sender: FDA-Public Use
  Company Number: DE-MERCK-0410DEU00391

PATIENT
  Age: 82 Year
  Sex: Female
  Weight: 70 kg

DRUGS (5)
  1. VIOXX [Suspect]
     Indication: BACK DISORDER
     Route: 048
     Dates: start: 20020513, end: 20030327
  2. VIOXX [Suspect]
     Route: 048
     Dates: start: 20030328, end: 20030617
  3. VIOXX [Suspect]
     Route: 048
     Dates: start: 20030618, end: 20031120
  4. [THERAPY UNSPECIFIED] [Concomitant]
     Route: 048
  5. XIPAMIDE [Concomitant]
     Route: 048

REACTIONS (5)
  - ATRIOVENTRICULAR BLOCK COMPLETE [None]
  - CARDIAC FAILURE [None]
  - CEREBROVASCULAR ACCIDENT [None]
  - HYPERTENSION [None]
  - HYPERTENSIVE CRISIS [None]
